FAERS Safety Report 6212490-2 (Version None)
Quarter: 2009Q2

REPORT INFORMATION
  Report Type: 
  Country: None (occurrence: None)
  Receive Date: 20090529
  Receipt Date: 20090515
  Transmission Date: 20091009
  Serious: Yes (Other)
  Sender: FDA-Public Use
  Company Number: MPS1-1000225

PATIENT
  Age: 11 Year
  Sex: Male
  Weight: 21.5 kg

DRUGS (1)
  1. ALDURAZYME [Suspect]
     Indication: MUCOPOLYSACCHARIDOSIS I
     Dosage: 1.16 MG/KG, Q2W,; 0.58 MG/KG, QW,
     Dates: end: 20090427

REACTIONS (4)
  - HYDROCEPHALUS [None]
  - HYPERCAPNIA [None]
  - MACROGLOSSIA [None]
  - OBSTRUCTIVE AIRWAYS DISORDER [None]
